FAERS Safety Report 24291243 (Version 1)
Quarter: 2024Q3

REPORT INFORMATION
  Report Type: Spontaneous
  Country: US (occurrence: None)
  Receive Date: 20240906
  Receipt Date: 20240906
  Transmission Date: 20241017
  Serious: No
  Sender: DOMPE FARMACEUTICI
  Company Number: US-FARMAPROD-202308-2341

PATIENT
  Age: 80 Year
  Sex: Female
  Weight: 50.8 kg

DRUGS (24)
  1. OXERVATE [Suspect]
     Active Substance: CENEGERMIN-BKBJ
     Indication: Neurotrophic keratopathy
     Route: 047
     Dates: start: 20230731
  2. MONTELUKAST SODIUM [Concomitant]
     Active Substance: MONTELUKAST\MONTELUKAST SODIUM
  3. MAGNESIUM OXIDE [Concomitant]
     Active Substance: MAGNESIUM OXIDE
  4. LYSINE [Concomitant]
     Active Substance: LYSINE
  5. LISINOPRIL [Concomitant]
     Active Substance: LISINOPRIL
  6. ATROVENT [Concomitant]
     Active Substance: IPRATROPIUM BROMIDE
     Dosage: HYDROFLUOROALKANE AEROSOL WITH ADAPTER
  7. DHA ALGAL-900 [Concomitant]
  8. VITAMIN D3 [Concomitant]
     Active Substance: CHOLECALCIFEROL
  9. TOBRADEX [Concomitant]
     Active Substance: DEXAMETHASONE\TOBRAMYCIN
     Dosage: 0.3 %-0.1%
  10. UBIQUINOL [Concomitant]
     Active Substance: UBIQUINOL
  11. TRETINOIN [Concomitant]
     Active Substance: TRETINOIN
  12. FISH OIL [Concomitant]
     Active Substance: FISH OIL
     Dosage: 120-180 MG
  13. VITAMIN C [Concomitant]
     Active Substance: ASCORBIC ACID
  14. XIIDRA [Concomitant]
     Active Substance: LIFITEGRAST
  15. MAGNESIUM [Concomitant]
     Active Substance: MAGNESIUM
  16. ATORVASTATIN CALCIUM [Concomitant]
     Active Substance: ATORVASTATIN CALCIUM
  17. LEVOTHYROXINE SODIUM [Concomitant]
     Active Substance: LEVOTHYROXINE SODIUM
  18. LEVOTHYROXINE SODIUM [Concomitant]
     Active Substance: LEVOTHYROXINE SODIUM
  19. DOXEPIN HYDROCHLORIDE [Concomitant]
     Active Substance: DOXEPIN HYDROCHLORIDE
  20. IPRATROPIUM BROMIDE [Concomitant]
     Active Substance: IPRATROPIUM BROMIDE\IPRATROPIUM BROMIDE ANHYDROUS
     Dosage: SPRAY
  21. PREMARIN [Concomitant]
     Active Substance: ESTROGENS, CONJUGATED
  22. FLUTICASONE PROPIONATE [Concomitant]
     Active Substance: FLUTICASONE PROPIONATE
     Dosage: SPRAY SUSPENSION
  23. ESTRADIOL [Concomitant]
     Active Substance: ESTRADIOL
  24. CALCIUM [Concomitant]
     Active Substance: CALCIUM

REACTIONS (2)
  - Periorbital pain [Recovering/Resolving]
  - Eye discharge [Recovering/Resolving]

NARRATIVE: CASE EVENT DATE: 20230802
